FAERS Safety Report 20375192 (Version 1)
Quarter: 2022Q1

REPORT INFORMATION
  Report Type: Spontaneous
  Country: US (occurrence: None)
  Receive Date: 20220124
  Receipt Date: 20220124
  Transmission Date: 20220424
  Serious: Yes (Hospitalization)
  Sender: FDA-Public Use
  Company Number: None

PATIENT
  Age: 25 Year
  Sex: Male
  Weight: 96.82 kg

DRUGS (6)
  1. CLOZAPINE [Suspect]
     Active Substance: CLOZAPINE
     Indication: Schizophrenia
     Dosage: FREQUENCY : TWICE A DAY;?
     Route: 048
     Dates: start: 20220110, end: 20220122
  2. Divalproex Sodium (Depakote) [Concomitant]
     Dates: start: 20220114, end: 20220124
  3. Guanfacine HCL (Tenex) [Concomitant]
     Dates: start: 20220109, end: 20220124
  4. Labetalol (Normodyne) [Concomitant]
     Dates: start: 20220110, end: 20220124
  5. CRESTOR [Concomitant]
     Active Substance: ROSUVASTATIN CALCIUM
     Dates: start: 20220109, end: 20220124
  6. Trazodone (Desyrel) [Concomitant]
     Dates: start: 20220109, end: 20220124

REACTIONS (6)
  - Myocarditis [None]
  - Psychotic disorder [None]
  - Symptom recurrence [None]
  - Therapy interrupted [None]
  - Influenza like illness [None]
  - Infection [None]

NARRATIVE: CASE EVENT DATE: 20220122
